FAERS Safety Report 13260706 (Version 1)
Quarter: 2017Q1

REPORT INFORMATION
  Report Type: Spontaneous
  Country: US (occurrence: US)
  Receive Date: 20170221
  Receipt Date: 20170221
  Transmission Date: 20170428
  Serious: Yes (Other)
  Sender: FDA-Public Use
  Company Number: None

PATIENT
  Age: 9 Year
  Sex: Male
  Weight: 40.05 kg

DRUGS (1)
  1. METHYLPHENIDATE HCI TABLET [Suspect]
     Active Substance: METHYLPHENIDATE HYDROCHLORIDE
     Indication: ATTENTION DEFICIT/HYPERACTIVITY DISORDER
     Route: 048
     Dates: start: 20141017, end: 20141107

REACTIONS (3)
  - Irritability [None]
  - Aggression [None]
  - Anger [None]

NARRATIVE: CASE EVENT DATE: 20141107
